FAERS Safety Report 13230206 (Version 1)
Quarter: 2017Q1

REPORT INFORMATION
  Report Type: Spontaneous
  Country: US (occurrence: US)
  Receive Date: 20170214
  Receipt Date: 20170214
  Transmission Date: 20170428
  Serious: Yes (Hospitalization)
  Sender: FDA-Public Use
  Company Number: None

PATIENT
  Age: 15 Year
  Sex: Male
  Weight: 72 kg

DRUGS (6)
  1. VINCRISTINE SULFATE. [Suspect]
     Active Substance: VINCRISTINE SULFATE
     Dates: end: 20170127
  2. CYCLOPHOSPHAMIDE. [Suspect]
     Active Substance: CYCLOPHOSPHAMIDE
     Dates: end: 20170106
  3. ONCASPAR [Suspect]
     Active Substance: PEGASPARGASE
     Dates: end: 20170120
  4. CYTARABINE. [Suspect]
     Active Substance: CYTARABINE
     Dates: end: 20170113
  5. MERCAPTOPURINE. [Suspect]
     Active Substance: MERCAPTOPURINE
     Dates: end: 20170202
  6. METHOTREXATE. [Suspect]
     Active Substance: METHOTREXATE
     Dates: end: 20170127

REACTIONS (2)
  - Splenic abscess [None]
  - Escherichia sepsis [None]

NARRATIVE: CASE EVENT DATE: 20170203
